FAERS Safety Report 7743519-8 (Version None)
Quarter: 2011Q3

REPORT INFORMATION
  Report Type: 
  Country: None (occurrence: None)
  Receive Date: 20110912
  Receipt Date: 20110901
  Transmission Date: 20111222
  Serious: Yes (Other)
  Sender: FDA-Public Use
  Company Number: CA-JNJFOC-20110901977

PATIENT
  Sex: Female
  Weight: 66.2 kg

DRUGS (4)
  1. RANITIDINE [Concomitant]
     Indication: DYSPEPSIA
  2. REMICADE [Suspect]
     Route: 042
     Dates: start: 20091125
  3. REMICADE [Suspect]
     Dosage: 16TH INFUSION
     Route: 042
     Dates: start: 20110902
  4. REMICADE [Suspect]
     Indication: CROHN'S DISEASE
     Route: 042
     Dates: start: 20110721

REACTIONS (3)
  - PAIN IN JAW [None]
  - HYPERHIDROSIS [None]
  - CHEST PAIN [None]
